FAERS Safety Report 7465033-X (Version None)
Quarter: 2011Q2

REPORT INFORMATION
  Report Type: 
  Country: None (occurrence: None)
  Receive Date: 20110509
  Receipt Date: 20110322
  Transmission Date: 20111010
  Serious: Yes (Hospitalization)
  Sender: FDA-Public Use
  Company Number: US-BAYER-2010-003434

PATIENT
  Age: 37 Year
  Sex: Female
  Weight: 61.224 kg

DRUGS (7)
  1. PROMETHAZINE [Concomitant]
  2. CLARITIN-D [Concomitant]
  3. YAZ [Suspect]
  4. YAZ [Suspect]
     Indication: PREMENSTRUAL SYNDROME
     Dosage: UNK
     Dates: start: 20080401, end: 20090101
  5. YASMIN [Suspect]
     Indication: PRODUCT USED FOR UNKNOWN INDICATION
     Route: 048
  6. LORTAB [Concomitant]
  7. YAZ [Suspect]
     Indication: DYSMENORRHOEA

REACTIONS (5)
  - CHOLELITHIASIS [None]
  - PAIN [None]
  - CHOLESTEROSIS [None]
  - ABDOMINAL PAIN UPPER [None]
  - CHOLECYSTITIS CHRONIC [None]
